FAERS Safety Report 13573215 (Version 3)
Quarter: 2018Q2

REPORT INFORMATION
  Report Type: Spontaneous
  Country: FR (occurrence: FR)
  Receive Date: 20170523
  Receipt Date: 20180601
  Transmission Date: 20180711
  Serious: Yes (Hospitalization)
  Sender: FDA-Public Use
  Company Number: FR-TEVA-769058ROM

PATIENT
  Age: 49 Year
  Sex: Female

DRUGS (13)
  1. PROPRANOLOL (CHLORHYDRATE DE) [Suspect]
     Active Substance: PROPRANOLOL HYDROCHLORIDE
     Dosage: USUAL TREATMENT
     Route: 048
  2. ZOLPIDEM (TARTRATE DE) [Suspect]
     Active Substance: ZOLPIDEM TARTRATE
     Dosage: USUAL TREATMENT
     Route: 048
     Dates: end: 20170410
  3. SULFARLEM [Suspect]
     Active Substance: ANETHOLTRITHION
     Dosage: USUAL TREATMENT
     Route: 048
  4. INEXIUM [Suspect]
     Active Substance: ESOMEPRAZOLE
     Dosage: USUAL TREATMENT
     Route: 048
  5. AMITRIPTYLINE [Concomitant]
     Active Substance: AMITRIPTYLINE
     Dosage: USUAL TREATMENT
  6. PARACETAMOL [Suspect]
     Active Substance: ACETAMINOPHEN
     Dosage: USUAL TREATMENT
     Route: 048
  7. DEBRIDAT [Suspect]
     Active Substance: TRIMEBUTINE MALEATE
     Route: 048
     Dates: start: 20170306
  8. ACUPAN [Suspect]
     Active Substance: NEFOPAM HYDROCHLORIDE
     Dosage: USUAL TREATMENT
     Route: 048
  9. KEPPRA [Suspect]
     Active Substance: LEVETIRACETAM
     Dosage: USUAL TREATMENT
     Route: 048
  10. PENTASA [Suspect]
     Active Substance: MESALAMINE
     Route: 048
     Dates: start: 20170306
  11. SPASFON (PHLOROGLUCINOL, TRIMETHYLPHLOROGLUCINOL) [Suspect]
     Active Substance: PHLOROGLUCINOL\1,3,5-TRIMETHOXYBENZENE
     Dosage: USUAL TREATMENT
     Route: 048
     Dates: end: 20170410
  12. GAVISCON [Suspect]
     Active Substance: ALUMINUM HYDROXIDE\MAGNESIUM CARBONATE
     Dosage: USUAL TREATMENT
     Route: 048
  13. BI-PROFENID [Concomitant]
     Active Substance: KETOPROFEN

REACTIONS (1)
  - Anaemia [Not Recovered/Not Resolved]

NARRATIVE: CASE EVENT DATE: 20170221
